FAERS Safety Report 5741129-5 (Version None)
Quarter: 2008Q2

REPORT INFORMATION
  Report Type: 
  Country: None (occurrence: None)
  Receive Date: 20080514
  Receipt Date: 20080508
  Transmission Date: 20081010
  Serious: Yes (Other)
  Sender: FDA-Public Use
  Company Number: CHPA2008US07878

PATIENT
  Sex: Female

DRUGS (1)
  1. THERAFLU SEVERE COLD (NCH)(PHENIRAMINE MALEATE, PHENYLEPHRINE HYDROCHL [Suspect]
     Indication: NASOPHARYNGITIS
     Dosage: 2 DF PER DAY, ORAL
     Route: 048
     Dates: start: 20080506, end: 20080508

REACTIONS (1)
  - BLOOD GLUCOSE INCREASED [None]
